FAERS Safety Report 19760392 (Version 1)
Quarter: 2021Q3

REPORT INFORMATION
  Report Type: Report from Study
  Country: CA (occurrence: CA)
  Receive Date: 20210830
  Receipt Date: 20210830
  Transmission Date: 20211014
  Serious: Yes (Other)
  Sender: FDA-Public Use
  Company Number: CA-BEH-2021135367

PATIENT
  Age: 57 Year
  Sex: Female
  Weight: 77.1 kg

DRUGS (3)
  1. HIZENTRA [Suspect]
     Active Substance: HUMAN IMMUNOGLOBULIN G
     Dosage: 4 GRAM, QW
     Route: 058
  2. OXYTROL [Concomitant]
     Active Substance: OXYBUTYNIN
     Route: 065
  3. HIZENTRA [Suspect]
     Active Substance: HUMAN IMMUNOGLOBULIN G
     Indication: PRIMARY IMMUNODEFICIENCY SYNDROME
     Dosage: 10 GRAM, QW
     Route: 058
     Dates: start: 20200917

REACTIONS (8)
  - Disturbance in attention [Unknown]
  - Somnolence [Unknown]
  - Hyperhidrosis [Unknown]
  - Weight increased [Unknown]
  - Amnesia [Unknown]
  - Meningitis [Unknown]
  - Dry mouth [Unknown]
  - Musculoskeletal stiffness [Unknown]

NARRATIVE: CASE EVENT DATE: 20200917
